FAERS Safety Report 4784393-1 (Version None)
Quarter: 2005Q3

REPORT INFORMATION
  Report Type: 
  Country: None (occurrence: None)
  Receive Date: 20050930
  Receipt Date: 20030828
  Transmission Date: 20060218
  Serious: Yes (Hospitalization, Congenital Anomaly)
  Sender: FDA-Public Use
  Company Number: GB-ABBOTT-03P-167-0231242-00

PATIENT
  Sex: Female
  Weight: 3.38 kg

DRUGS (2)
  1. EPILIM TABLETS [Suspect]
     Indication: DRUG EXPOSURE DURING PREGNANCY
  2. VIGABATRIN [Suspect]
     Indication: DRUG EXPOSURE DURING PREGNANCY

REACTIONS (18)
  - CONGENITAL ANOMALY [None]
  - CONGENITAL NOSE MALFORMATION [None]
  - DEAFNESS [None]
  - DEVELOPMENTAL DELAY [None]
  - EYE MOVEMENT DISORDER [None]
  - FACIAL DYSMORPHISM [None]
  - FOETAL VALPROATE SYNDROME [None]
  - HYPERTELORISM OF ORBIT [None]
  - HYPERTONIA [None]
  - HYPOCALCAEMIA [None]
  - HYPOMAGNESAEMIA [None]
  - LEARNING DISORDER [None]
  - LOW SET EARS [None]
  - MACROSOMIA [None]
  - MUSCLE TWITCHING [None]
  - PREMATURE BABY [None]
  - SPEECH DISORDER DEVELOPMENTAL [None]
  - STRABISMUS [None]
